FAERS Safety Report 7801013-X (Version None)
Quarter: 2011Q4

REPORT INFORMATION
  Report Type: 
  Country: None (occurrence: None)
  Receive Date: 20111007
  Receipt Date: 20110929
  Transmission Date: 20120403
  Serious: Yes (Hospitalization)
  Sender: FDA-Public Use
  Company Number: US-BIOGENIDEC-2011BI037560

PATIENT
  Age: 59 Year
  Sex: Female

DRUGS (3)
  1. TYSABRI [Concomitant]
     Indication: MULTIPLE SCLEROSIS
     Route: 042
     Dates: start: 20101207, end: 20110202
  2. AVONEX [Suspect]
     Indication: MULTIPLE SCLEROSIS
     Route: 030
     Dates: start: 20081024
  3. AVONEX [Suspect]
     Route: 030
     Dates: start: 20060608, end: 20060820

REACTIONS (4)
  - DEHYDRATION [None]
  - HEPATIC ENZYME INCREASED [None]
  - GASTROENTERITIS VIRAL [None]
  - BLOOD POTASSIUM DECREASED [None]
